FAERS Safety Report 4629245-2 (Version None)
Quarter: 2005Q2

REPORT INFORMATION
  Report Type: 
  Country: None (occurrence: None)
  Receive Date: 20050405
  Receipt Date: 20050329
  Transmission Date: 20051028
  Serious: Yes (Death)
  Sender: FDA-Public Use
  Company Number: 163-20785-05030750

PATIENT
  Age: 55 Year
  Sex: Female

DRUGS (1)
  1. THALOMID [Suspect]
     Indication: BLADDER CANCER
     Dosage: 100 MG, DAILY, ORAL
     Route: 048
     Dates: start: 20050125, end: 20050101

REACTIONS (1)
  - RESPIRATORY ARREST [None]
